FAERS Safety Report 6639767-0 (Version None)
Quarter: 2010Q1

REPORT INFORMATION
  Report Type: 
  Country: None (occurrence: None)
  Receive Date: 20100318
  Receipt Date: 20100312
  Transmission Date: 20100710
  Serious: Yes (Death, Hospitalization, Other)
  Sender: FDA-Public Use
  Company Number: PHHY2010CH14750

PATIENT
  Age: 84 Year
  Sex: Female

DRUGS (9)
  1. LEPONEX [Suspect]
     Indication: ACUTE PSYCHOSIS
     Dosage: 25 MG/DAY
     Dates: start: 20100122, end: 20100124
  2. RISPERDAL [Suspect]
     Indication: ACUTE PSYCHOSIS
     Dosage: 3 MG/D
     Dates: start: 20091208, end: 20100108
  3. SOLIAN [Suspect]
     Dosage: 400 MG/DAY
     Dates: start: 20100108, end: 20100124
  4. CITALOPRAM HYDROBROMIDE [Suspect]
     Dosage: 20 MG/DAY
     Dates: start: 20091217, end: 20100124
  5. VESICARE [Concomitant]
     Dosage: 5 MG/D
     Dates: start: 20091208, end: 20100124
  6. DISTRANEURIN [Concomitant]
     Dosage: 300 MG/D
     Dates: start: 20091208, end: 20100124
  7. LAXOBERON [Concomitant]
     Dosage: 20 GOUTES/DAY
     Dates: start: 20091218, end: 20100124
  8. DAFALGAN [Concomitant]
     Dosage: 3000 MG/D
     Dates: start: 20091211, end: 20100124
  9. NEXIUM [Concomitant]
     Dosage: 20 MG/D
     Dates: start: 20100122, end: 20100124

REACTIONS (11)
  - ARTERIAL OCCLUSIVE DISEASE [None]
  - ARTERIOSCLEROSIS [None]
  - ASPIRATION BRONCHIAL [None]
  - CEREBROVASCULAR ACCIDENT [None]
  - COMA SCALE ABNORMAL [None]
  - CORONARY ARTERY EMBOLISM [None]
  - HEMIANOPIA [None]
  - HEMIPARESIS [None]
  - MYOCARDIAL INFARCTION [None]
  - PNEUMONIA [None]
  - THROMBOTIC STROKE [None]
